FAERS Safety Report 18348033 (Version 1)
Quarter: 2020Q4

REPORT INFORMATION
  Report Type: Spontaneous
  Country: CZ (occurrence: CZ)
  Receive Date: 20201006
  Receipt Date: 20201006
  Transmission Date: 20210114
  Serious: Yes (Other)
  Sender: FDA-Public Use
  Company Number: CZ-GLAXOSMITHKLINE-CZ2020EME196670

PATIENT
  Sex: Female
  Weight: 38 kg

DRUGS (7)
  1. CYCLOSPORINE. [Suspect]
     Active Substance: CYCLOSPORINE
     Indication: PSORIASIS
     Dosage: 100 MG, QD
     Dates: start: 20150516, end: 201507
  2. ETANERCEPT [Suspect]
     Active Substance: ETANERCEPT
     Indication: PUSTULAR PSORIASIS
     Dosage: UNK
     Route: 058
     Dates: start: 20190823
  3. ETANERCEPT [Suspect]
     Active Substance: ETANERCEPT
     Indication: PSORIASIS
     Dosage: 33 MG, WE
     Route: 058
     Dates: start: 20150708, end: 201704
  4. AUGMENTIN [Concomitant]
     Active Substance: AMOXICILLIN\CLAVULANATE POTASSIUM
     Indication: MORAXELLA INFECTION
     Dosage: UNK
  5. METHOTREXATE. [Concomitant]
     Active Substance: METHOTREXATE
     Indication: PSORIASIS
     Dosage: UNK
     Dates: start: 20140328
  6. ICHTHAMMOL [Concomitant]
     Active Substance: ICHTHAMMOL
     Indication: PSORIASIS
     Dosage: UNK
     Dates: start: 201311
  7. ACITRETIN. [Suspect]
     Active Substance: ACITRETIN
     Indication: PRODUCT USED FOR UNKNOWN INDICATION
     Dosage: 20 MG, QD
     Dates: start: 20150206

REACTIONS (3)
  - Skin exfoliation [Recovering/Resolving]
  - Psoriasis [Unknown]
  - Rash papular [Unknown]

NARRATIVE: CASE EVENT DATE: 201506
